FAERS Safety Report 7722358-8 (Version None)
Quarter: 2011Q3

REPORT INFORMATION
  Report Type: 
  Country: None (occurrence: None)
  Receive Date: 20110831
  Receipt Date: 20110816
  Transmission Date: 20111222
  Serious: Yes (Death, Hospitalization)
  Sender: FDA-Public Use
  Company Number: DE-GENENTECH-323448

PATIENT
  Sex: Male

DRUGS (2)
  1. RITUXIMAB [Suspect]
     Indication: CHRONIC LYMPHOCYTIC LEUKAEMIA
     Dosage: UNK
     Route: 065
     Dates: start: 20101214, end: 20110621
  2. BENDAMUSTINE [Suspect]
     Indication: CHRONIC LYMPHOCYTIC LEUKAEMIA
     Dosage: 240 MG, UNK
     Route: 065
     Dates: start: 20101215, end: 20110210

REACTIONS (2)
  - SUBARACHNOID HAEMORRHAGE [None]
  - THROMBOCYTOPENIA [None]
